APPROVED DRUG PRODUCT: PREGABALIN
Active Ingredient: PREGABALIN
Strength: 75MG
Dosage Form/Route: CAPSULE;ORAL
Application: A214322 | Product #002 | TE Code: AB
Applicant: CHANGZHOU PHARMACEUTICAL FACTORY
Approved: Jul 15, 2021 | RLD: No | RS: No | Type: RX